FAERS Safety Report 18530054 (Version 2)
Quarter: 2025Q4

REPORT INFORMATION
  Report Type: Spontaneous
  Country: US (occurrence: US)
  Receive Date: 20201120
  Receipt Date: 20251114
  Transmission Date: 20260118
  Serious: Yes (Other)
  Sender: NOVO NORDISK
  Company Number: US-NOVOPROD-707513

PATIENT
  Age: 52 Year
  Sex: Male

DRUGS (1)
  1. NOVOLOG [Suspect]
     Active Substance: INSULIN ASPART
     Indication: Diabetes mellitus
     Dosage: UNK
     Route: 058

REACTIONS (15)
  - Intentional self-injury [Unknown]
  - Epilepsy [Unknown]
  - Schizophrenia [Unknown]
  - Neoplasm [Unknown]
  - Loss of consciousness [Unknown]
  - Overdose [Unknown]
  - Blood glucose decreased [Unknown]
  - Emotional disorder [Unknown]
  - Condition aggravated [Unknown]
  - Anxiety [Unknown]
  - Attention deficit hyperactivity disorder [Unknown]
  - Panic attack [Unknown]
  - Memory impairment [Unknown]
  - Product dose omission issue [Unknown]
  - Product storage error [Unknown]

NARRATIVE: CASE EVENT DATE: 20191129
